FAERS Safety Report 5709093-2 (Version None)
Quarter: 2008Q2

REPORT INFORMATION
  Report Type: 
  Country: None (occurrence: None)
  Receive Date: 20080416
  Receipt Date: 20080416
  Transmission Date: 20081010
  Serious: Yes (Hospitalization)
  Sender: FDA-Public Use
  Company Number: None

PATIENT
  Sex: Male
  Weight: 81.2 kg

DRUGS (5)
  1. TEMOZOLOMIDE [Suspect]
     Dosage: 5550 MG
  2. BACTRIM [Concomitant]
  3. KEPPRA [Concomitant]
  4. ORAL STEROIDS [Concomitant]
  5. TOPROL-XL [Concomitant]

REACTIONS (1)
  - PLATELET COUNT DECREASED [None]
